FAERS Safety Report 8510409-2 (Version None)
Quarter: 2012Q3

REPORT INFORMATION
  Report Type: 
  Country: None (occurrence: None)
  Receive Date: 20120713
  Receipt Date: 20120328
  Transmission Date: 20120928
  Serious: Yes (Death, Life-Threatening, Hospitalization, Disabling, Other)
  Sender: FDA-Public Use
  Company Number: PHHY2012PL026638

PATIENT
  Sex: Male
  Weight: 85 kg

DRUGS (7)
  1. ENARENAL [Concomitant]
     Indication: HYPERTENSION
     Dosage: 5 MG, BID
     Route: 048
     Dates: start: 20110815, end: 20120219
  2. CERTICAN [Suspect]
     Indication: IMMUNOSUPPRESSION
     Dosage: ACCORDING TO LEVEL
     Route: 048
     Dates: start: 20110823, end: 20111221
  3. POLPRAZOL [Concomitant]
     Indication: PEPTIC ULCER
     Dosage: 20 MG, BID
     Route: 048
     Dates: start: 20110810
  4. TACROLIMUS [Concomitant]
     Indication: IMMUNOSUPPRESSION
     Dosage: ACCORDING TO LEVEL
     Route: 048
     Dates: start: 20110810
  5. ATENOLOL [Concomitant]
     Indication: HYPERTENSION
     Dosage: 25 MG, BID
     Route: 048
     Dates: start: 20110815, end: 20120222
  6. OMEPRAZOLE (PRISOLEC) [Concomitant]
     Indication: PEPTIC ULCER
     Dosage: UNK UKN, UNK
     Dates: start: 20110810
  7. ATORIS [Concomitant]
     Indication: IMMUNOSUPPRESSION
     Dosage: 10 MG, UNK
     Route: 048
     Dates: start: 20110810, end: 20120315

REACTIONS (7)
  - CARDIOPULMONARY FAILURE [None]
  - PNEUMONIA PRIMARY ATYPICAL [None]
  - ESCHERICHIA INFECTION [None]
  - FUNGAL SEPSIS [None]
  - MULTI-ORGAN FAILURE [None]
  - ENTEROCOCCAL INFECTION [None]
  - KLEBSIELLA INFECTION [None]
